FAERS Safety Report 6154301-X (Version None)
Quarter: 2009Q2

REPORT INFORMATION
  Report Type: 
  Country: None (occurrence: None)
  Receive Date: 20090410
  Receipt Date: 20090402
  Transmission Date: 20091009
  Serious: Yes (Hospitalization)
  Sender: FDA-Public Use
  Company Number: 006058

PATIENT
  Age: 75 Year
  Sex: Female

DRUGS (3)
  1. PLETAL [Suspect]
     Indication: CEREBRAL ARTERY STENOSIS
     Dosage: 100 MG, BID ORAL
     Route: 048
     Dates: start: 20090401
  2. PRAVASTATIN SODIUM [Concomitant]
  3. DIOVAN [Concomitant]

REACTIONS (2)
  - CHEST PAIN [None]
  - STRESS CARDIOMYOPATHY [None]
